FAERS Safety Report 9434609 (Version 1)
Quarter: 2013Q3

REPORT INFORMATION
  Report Type: Spontaneous
  Country: US (occurrence: None)
  Receive Date: 20130731
  Receipt Date: 20130731
  Transmission Date: 20140515
  Serious: Yes (Hospitalization, Disabling)
  Sender: FDA-Public Use
  Company Number: None

PATIENT
  Age: 72 Year
  Sex: Male
  Weight: 82.1 kg

DRUGS (15)
  1. CLONIDINE [Suspect]
     Indication: HYPERTENSION
     Dosage: ONE TABLET TWICE A DAY TWICE DAILY A.M BEDTIME BY MOUTH
     Route: 048
     Dates: start: 20121112, end: 20130515
  2. NORVASC [Concomitant]
  3. DIOVAN [Concomitant]
  4. CARVEDILOL [Concomitant]
  5. ATORVASTATIN [Concomitant]
  6. CLOPIDOGREL [Concomitant]
  7. LANGUS [Concomitant]
  8. TRAVATAN [Concomitant]
  9. COENZYME [Concomitant]
  10. MUTIVITAMIN [Concomitant]
  11. VITAMIN D [Concomitant]
  12. ASPIRIN [Concomitant]
  13. VITAMIN B 12 COMPLEX [Concomitant]
  14. FOLATE [Concomitant]
  15. ARGININE [Concomitant]

REACTIONS (2)
  - Transient ischaemic attack [None]
  - Fall [None]
